FAERS Safety Report 20238665 (Version 2)
Quarter: 2022Q1

REPORT INFORMATION
  Report Type: Spontaneous
  Country: MX (occurrence: None)
  Receive Date: 20211228
  Receipt Date: 20220215
  Transmission Date: 20220423
  Serious: Yes (Death, Life-Threatening)
  Sender: FDA-Public Use
  Company Number: 2021A904532

PATIENT
  Age: 24183 Day
  Sex: Male
  Weight: 65 kg

DRUGS (2)
  1. CALQUENCE [Suspect]
     Active Substance: ACALABRUTINIB
     Dosage: 100.0MG UNKNOWN
     Route: 048
     Dates: end: 20211106
  2. CALQUENCE [Suspect]
     Active Substance: ACALABRUTINIB
     Dosage: 100.0MG UNKNOWN
     Route: 048
     Dates: start: 20211112

REACTIONS (2)
  - COVID-19 [Fatal]
  - Acute respiratory failure [Fatal]

NARRATIVE: CASE EVENT DATE: 20211106
